FAERS Safety Report 4550359-X (Version None)
Quarter: 2004Q4

REPORT INFORMATION
  Report Type: 
  Country: None (occurrence: None)
  Receive Date: 20041227
  Receipt Date: 20040922
  Transmission Date: 20050328
  Serious: No
  Sender: FDA-Public Use
  Company Number: US092557

PATIENT
  Age: 45 Year
  Sex: Female

DRUGS (1)
  1. ARANESP [Suspect]
     Indication: RENAL FAILURE CHRONIC
     Dosage: 100 MCG, 1 IN 2 WEEKS, SC
     Route: 058
     Dates: start: 20040701

REACTIONS (1)
  - BLOOD GLUCOSE INCREASED [None]
